FAERS Safety Report 10083290 (Version 1)
Quarter: 2014Q2

REPORT INFORMATION
  Report Type: Spontaneous
  Country: GB (occurrence: GB)
  Receive Date: 20140417
  Receipt Date: 20140417
  Transmission Date: 20141212
  Serious: Yes (Death, Disabling)
  Sender: FDA-Public Use
  Company Number: GB-ACCORD-023036

PATIENT
  Age: 73 Year
  Sex: Male
  Weight: 108 kg

DRUGS (4)
  1. FLUOROURACIL [Suspect]
     Indication: COLORECTAL CANCER METASTATIC
     Dosage: 400 MG FOLLOWED BY 2400 MG. PATIENT RECEIVED 6 CYCLES.
     Route: 042
     Dates: start: 20130626, end: 20130904
  2. FOLINIC ACID [Suspect]
     Indication: COLORECTAL CANCER METASTATIC
     Dosage: PATIENT RECEIVED 6 CYCLES.
     Route: 042
     Dates: start: 20130626, end: 20130904
  3. IRINOTECAN [Suspect]
     Indication: COLORECTAL CANCER METASTATIC
     Dosage: PATIENT RECEIVED 6 CYCLES.
     Route: 042
     Dates: start: 20130626, end: 20130904
  4. AFLIBERCEPT [Suspect]
     Indication: COLORECTAL CANCER METASTATIC
     Dosage: DRUG WAS OMITTED IN 5 CYCLES.
     Route: 042
     Dates: start: 20130626

REACTIONS (6)
  - Diarrhoea [Recovered/Resolved]
  - Abdominal pain upper [Recovered/Resolved]
  - Fatigue [Recovered/Resolved]
  - Weight decreased [Recovered/Resolved]
  - Blood pressure increased [Recovered/Resolved]
  - Neoplasm progression [Fatal]
